FAERS Safety Report 9296477 (Version 1)
Quarter: 2013Q2

REPORT INFORMATION
  Report Type: Spontaneous
  Country: NL (occurrence: NL)
  Receive Date: 20130517
  Receipt Date: 20130517
  Transmission Date: 20140414
  Serious: Yes (Life-Threatening)
  Sender: FDA-Public Use
  Company Number: NL-JNJFOC-20130501871

PATIENT
  Age: 50 Year
  Sex: Female

DRUGS (3)
  1. DIPIDOLOR [Suspect]
     Indication: APPENDICECTOMY
     Route: 042
  2. TRAMADOL [Suspect]
     Indication: PRODUCT USED FOR UNKNOWN INDICATION
     Route: 048
  3. KETAMINE [Suspect]
     Indication: PRODUCT USED FOR UNKNOWN INDICATION
     Route: 065

REACTIONS (4)
  - Anaphylactic reaction [Recovering/Resolving]
  - Urine output decreased [Unknown]
  - Cognitive disorder [Recovering/Resolving]
  - Haemoglobin decreased [Unknown]
